FAERS Safety Report 6816620-0 (Version None)
Quarter: 2010Q3

REPORT INFORMATION
  Report Type: 
  Country: None (occurrence: None)
  Receive Date: 20100706
  Receipt Date: 20091222
  Transmission Date: 20110219
  Serious: Yes (Hospitalization)
  Sender: FDA-Public Use
  Company Number: CA-JNJFOC-20091105639

PATIENT
  Sex: Male
  Weight: 76.3 kg

DRUGS (31)
  1. DOXORUBICIN HCL [Suspect]
     Indication: MULTIPLE MYELOMA
     Dosage: CYCLE 1
     Route: 042
  2. DOXORUBICIN HCL [Suspect]
     Route: 042
  3. VELCADE [Suspect]
     Indication: MULTIPLE MYELOMA
     Route: 042
  4. VELCADE [Suspect]
     Route: 042
  5. DEXAMETHASONE [Suspect]
     Indication: MULTIPLE MYELOMA
     Route: 048
  6. DEXAMETHASONE [Suspect]
     Route: 048
  7. DEXAMETHASONE [Suspect]
     Route: 048
  8. MULTI-VITAMINS [Concomitant]
     Indication: ROUTINE HEALTH MAINTENANCE
     Route: 048
  9. FOLIC ACID [Concomitant]
     Indication: ROUTINE HEALTH MAINTENANCE
     Route: 048
  10. VITAMIN D [Concomitant]
     Indication: OSTEOPOROSIS
     Route: 048
  11. PANTOPRAZOLE [Concomitant]
     Indication: GASTRITIS
     Route: 048
  12. PANTOPRAZOLE [Concomitant]
     Route: 048
  13. LORAZEPAM [Concomitant]
     Indication: INSOMNIA
     Route: 048
  14. SIMVASTATIN [Concomitant]
     Indication: HYPERCHOLESTEROLAEMIA
     Route: 048
  15. LISINOPRIL [Concomitant]
     Indication: HYPERTENSION
     Route: 048
  16. ALLOPURINOL [Concomitant]
     Indication: GOUT
     Route: 048
  17. ALLOPURINOL [Concomitant]
     Indication: RENAL FAILURE
     Route: 048
  18. KAYEXALATE [Concomitant]
     Indication: HYPERKALAEMIA
     Route: 048
  19. KAYEXALATE [Concomitant]
     Route: 048
  20. NYSTATIN [Concomitant]
     Indication: ORAL CANDIDIASIS
     Route: 048
  21. BISOPROLOL [Concomitant]
     Indication: ATRIAL FIBRILLATION
     Route: 048
  22. LEVOFLOXACIN [Concomitant]
     Indication: INFECTION
     Route: 048
  23. LEVOFLOXACIN [Concomitant]
     Route: 048
  24. ACYCLOVIR [Concomitant]
     Indication: HERPES ZOSTER
     Route: 048
  25. ACYCLOVIR [Concomitant]
     Route: 048
  26. METRONIDAZOLE [Concomitant]
     Indication: INFECTION
     Route: 042
  27. OXYCODONE HCL [Concomitant]
     Indication: PROCEDURAL PAIN
     Route: 048
  28. CALCIUM GLUCONATE [Concomitant]
     Indication: HYPOCALCAEMIA
     Route: 048
  29. PERCOCET [Concomitant]
     Indication: PROCEDURAL PAIN
     Route: 048
  30. SENNA [Concomitant]
     Indication: CONSTIPATION
     Route: 048
  31. SODIUM SULFATE [Concomitant]
     Indication: HYPONATRAEMIA
     Route: 042

REACTIONS (4)
  - BLOOD CREATININE INCREASED [None]
  - CONSTIPATION [None]
  - DIVERTICULAR PERFORATION [None]
  - HYPONATRAEMIA [None]
